FAERS Safety Report 5712294-0 (Version None)
Quarter: 2008Q2

REPORT INFORMATION
  Report Type: 
  Country: None (occurrence: None)
  Receive Date: 20080421
  Receipt Date: 20080421
  Transmission Date: 20081010
  Serious: Yes (Hospitalization)
  Sender: FDA-Public Use
  Company Number: None

PATIENT
  Age: 59 Year
  Sex: Male

DRUGS (2)
  1. ZILEUTON 600 MG CRITICAL THERAPEUTICS [Suspect]
     Indication: CHRONIC OBSTRUCTIVE PULMONARY DISEASE
     Dosage: ONE TABLET 4 X DAY PO
     Route: 048
  2. ZILEUTON 600 MG CRITICAL THERAPEUTICS [Suspect]
     Indication: CONDITION AGGRAVATED
     Dosage: ONE TABLET 4 X DAY PO
     Route: 048

REACTIONS (3)
  - ATRIAL FIBRILLATION [None]
  - CARDIAC FAILURE CONGESTIVE [None]
  - TREATMENT NONCOMPLIANCE [None]
